FAERS Safety Report 9069321 (Version 1)
Quarter: 2013Q1

REPORT INFORMATION
  Report Type: Report from Study
  Country: US (occurrence: US)
  Receive Date: 20130131
  Receipt Date: 20130131
  Transmission Date: 20140127
  Serious: No
  Sender: FDA-Public Use
  Company Number: US-ABBOTT-12P-163-1001200-00

PATIENT
  Age: 47 Year
  Sex: Female
  Weight: 131.66 kg

DRUGS (3)
  1. HUMIRA [Suspect]
     Indication: RHEUMATOID ARTHRITIS
     Route: 058
     Dates: start: 201208
  2. MOTRIN [Suspect]
     Indication: ARTHRALGIA
     Dosage: PRN; USUALLY TAKES ONCE DAILY TOOK TWICE ON 25-OCT-2012
  3. CYMBALTA [Concomitant]
     Indication: FIBROMYALGIA
     Dates: start: 2012

REACTIONS (2)
  - Contusion [Not Recovered/Not Resolved]
  - Pain in extremity [Recovered/Resolved]
